FAERS Safety Report 12320994 (Version 2)
Quarter: 2016Q3

REPORT INFORMATION
  Report Type: Report from Study
  Country: GB (occurrence: GB)
  Receive Date: 20160502
  Receipt Date: 20160819
  Transmission Date: 20161109
  Serious: Yes (Disabling)
  Sender: FDA-Public Use
  Company Number: GB-ROCHE-1749404

PATIENT
  Sex: Female
  Weight: 44 kg

DRUGS (4)
  1. HYDROXYCHLOROQUINE [Concomitant]
     Active Substance: HYDROXYCHLOROQUINE
  2. RITUXIMAB [Suspect]
     Active Substance: RITUXIMAB
     Indication: RHEUMATOID ARTHRITIS
     Route: 042
     Dates: start: 20120327, end: 20130522
  3. METHOTREXATE. [Concomitant]
     Active Substance: METHOTREXATE
  4. SULPHASALAZINE [Concomitant]
     Active Substance: SULFASALAZINE

REACTIONS (3)
  - Transient ischaemic attack [Unknown]
  - Radius fracture [Unknown]
  - Fall [Unknown]

NARRATIVE: CASE EVENT DATE: 20130820
